FAERS Safety Report 22598867 (Version 1)
Quarter: 2023Q2

REPORT INFORMATION
  Report Type: Spontaneous
  Country: US (occurrence: US)
  Receive Date: 20230614
  Receipt Date: 20230614
  Transmission Date: 20230721
  Serious: Yes (Life-Threatening, Hospitalization, Other)
  Sender: FDA-Public Use
  Company Number: US-drreddys-LIT/USA/23/0166654

PATIENT
  Age: 10 Year
  Sex: Male

DRUGS (2)
  1. BIVALIRUDIN [Suspect]
     Active Substance: BIVALIRUDIN
     Indication: Thrombosis
  2. HEPARIN SODIUM [Suspect]
     Active Substance: HEPARIN SODIUM
     Indication: Anticoagulant therapy

REACTIONS (5)
  - Haemorrhage intracranial [Recovering/Resolving]
  - Subdural haematoma [Recovering/Resolving]
  - Brain oedema [Recovering/Resolving]
  - Condition aggravated [Unknown]
  - Cerebral mass effect [Recovering/Resolving]
